FAERS Safety Report 13052542 (Version 1)
Quarter: 2016Q4

REPORT INFORMATION
  Report Type: Spontaneous
  Country: US (occurrence: US)
  Receive Date: 20161221
  Receipt Date: 20161221
  Transmission Date: 20170207
  Serious: No
  Sender: FDA-Public Use
  Company Number: US-ALLERGAN-1000081704

PATIENT
  Age: 59 Year
  Sex: Male

DRUGS (5)
  1. BENICAR [Concomitant]
     Active Substance: OLMESARTAN MEDOXOMIL
     Dosage: 40 MG, UNK
     Route: 048
  2. EPLERENONE. [Concomitant]
     Active Substance: EPLERENONE
     Dosage: 50 MG, UNK
     Route: 048
  3. MONTELUKAST [Concomitant]
     Active Substance: MONTELUKAST SODIUM
     Dosage: 10 MG, UNK
     Route: 048
  4. HYDROCHLOROTHIAZIDE. [Concomitant]
     Active Substance: HYDROCHLOROTHIAZIDE
     Dosage: 25 MG, UNK
     Route: 048
  5. BYSTOLIC [Suspect]
     Active Substance: NEBIVOLOL HYDROCHLORIDE
     Indication: HYPERTENSION
     Dosage: 10 MG, QD
     Route: 048
     Dates: start: 2013

REACTIONS (3)
  - Rash [Recovered/Resolved]
  - Urticaria [Recovered/Resolved]
  - Blood pressure increased [Recovered/Resolved]

NARRATIVE: CASE EVENT DATE: 201511
